FAERS Safety Report 8921810 (Version 1)
Quarter: 2012Q4

REPORT INFORMATION
  Report Type: 
  Country: CN (occurrence: CN)
  Receive Date: 20121121
  Receipt Date: 20121121
  Transmission Date: 20130627
  Serious: Yes (Other)
  Sender: FDA-Public Use
  Company Number: CN-ROCHE-1155977

PATIENT

DRUGS (3)
  1. INTERFERON ALFA-2A [Suspect]
     Indication: CHRONIC HEPATITIS C
     Dosage: 3 to 5 MU
     Route: 065
  2. RIBAVIRIN [Suspect]
     Indication: CHRONIC HEPATITIS C
     Dosage: 600 to 1200 mg
     Route: 065
  3. PEG-INTERFERON ALFA 2A [Suspect]
     Indication: CHRONIC HEPATITIS C
     Dosage: 180?g or 135?g
     Route: 065

REACTIONS (2)
  - Thyroid disorder [Unknown]
  - Thyroiditis [Unknown]
